FAERS Safety Report 4595684-1 (Version None)
Quarter: 2005Q1

REPORT INFORMATION
  Report Type: 
  Country: None (occurrence: None)
  Receive Date: 20050224
  Receipt Date: 20050112
  Transmission Date: 20050727
  Serious: Yes (Hospitalization)
  Sender: FDA-Public Use
  Company Number: ENT 2005-0005

PATIENT
  Age: 71 Year
  Sex: Female

DRUGS (11)
  1. COMTESS (ENTACAPONE) [Suspect]
     Indication: PARKINSON'S DISEASE
     Dosage: ORAL
     Route: 048
  2. INSULIN [Concomitant]
  3. ASPIRIN [Concomitant]
  4. ATENOLOL [Concomitant]
  5. METFORMIN [Concomitant]
  6. ATORVASTATIN [Concomitant]
  7. SINEMET CR [Concomitant]
  8. SINEMET [Concomitant]
  9. AMILORIDE [Concomitant]
  10. GLIMEPIRIDE [Concomitant]
  11. FRUSEMIDE [Concomitant]

REACTIONS (3)
  - DRUG INTOLERANCE [None]
  - FACE OEDEMA [None]
  - GENERALISED OEDEMA [None]
